FAERS Safety Report 21043503 (Version 1)
Quarter: 2022Q3

REPORT INFORMATION
  Report Type: Spontaneous
  Country: US (occurrence: US)
  Receive Date: 20220705
  Receipt Date: 20220705
  Transmission Date: 20221027
  Serious: No
  Sender: FDA-Public Use
  Company Number: US-SAREPTA THERAPEUTICS INC.-SRP2021-001695

PATIENT
  Age: 19 Year
  Sex: Male
  Weight: 57.7 kg

DRUGS (2)
  1. EXONDYS 51 [Suspect]
     Active Substance: ETEPLIRSEN
     Indication: Duchenne muscular dystrophy
     Dosage: 1800 MILLIGRAM, WEEKLY
     Route: 042
     Dates: start: 201706, end: 202109
  2. EXONDYS 51 [Suspect]
     Active Substance: ETEPLIRSEN
     Dosage: 1800 MILLIGRAM, WEEKLY
     Route: 042
     Dates: start: 202109

REACTIONS (4)
  - Device issue [Unknown]
  - Device deposit issue [Unknown]
  - Product dose omission issue [Unknown]
  - No adverse event [Unknown]

NARRATIVE: CASE EVENT DATE: 20210916
